FAERS Safety Report 14609964 (Version 7)
Quarter: 2018Q2

REPORT INFORMATION
  Report Type: Spontaneous
  Country: TW (occurrence: TW)
  Receive Date: 20180307
  Receipt Date: 20180628
  Transmission Date: 20180711
  Serious: Yes (Other)
  Sender: FDA-Public Use
  Company Number: TW-PFIZER INC-2018088324

PATIENT
  Age: 70 Year
  Sex: Male

DRUGS (2)
  1. SUTENT [Suspect]
     Active Substance: SUNITINIB MALATE
     Indication: RENAL CELL CARCINOMA
     Dosage: 12.5 MG, CYCLIC (FOUR TIMES DAILY, TWO WEEKS ON AND ONE WEEK OFF)
     Route: 048
     Dates: start: 20180118, end: 2018
  2. SUTENT [Suspect]
     Active Substance: SUNITINIB MALATE
     Dosage: 37.5MG CYCLIC (ONCE DAILY, TWO WEEKS ON AND ONE WEEK OFF)
     Route: 048
     Dates: start: 20180223, end: 20180423

REACTIONS (6)
  - Platelet count decreased [Recovering/Resolving]
  - Palmar-plantar erythrodysaesthesia syndrome [Recovering/Resolving]
  - White blood cell count decreased [Recovering/Resolving]
  - Dysgeusia [Recovering/Resolving]
  - Neoplasm progression [Recovering/Resolving]
  - Gastric ulcer [Recovering/Resolving]

NARRATIVE: CASE EVENT DATE: 2018
